FAERS Safety Report 10777012 (Version 1)
Quarter: 2015Q1

REPORT INFORMATION
  Report Type: Spontaneous
  Country: US (occurrence: US)
  Receive Date: 20150209
  Receipt Date: 20150209
  Transmission Date: 20150721
  Serious: Yes (Hospitalization)
  Sender: FDA-Public Use
  Company Number: US-RB PHARMACEUTICALS LIMITED-RB-70568-2014

PATIENT

DRUGS (10)
  1. SIMVASTATIN. [Concomitant]
     Active Substance: SIMVASTATIN
     Indication: HYPERLIPIDAEMIA
     Dosage: UNK, DAILY
     Route: 048
     Dates: start: 2004
  2. MULTIVITAMIN                       /00097801/ [Concomitant]
     Active Substance: VITAMINS
     Indication: NUTRITIONAL SUPPLEMENTATION
     Dosage: UNK, DAILY
     Route: 048
     Dates: start: 2003
  3. FENOFIBRATE. [Concomitant]
     Active Substance: FENOFIBRATE
     Indication: HYPERLIPIDAEMIA
     Dosage: UNK, DAILY
     Route: 048
     Dates: start: 2010
  4. GLYBURIDE AND METFORMIN HCL [Concomitant]
     Indication: PRODUCT USED FOR UNKNOWN INDICATION
     Dosage: UNK, DAILY
     Route: 048
     Dates: start: 2006
  5. SERTRALINE [Concomitant]
     Active Substance: SERTRALINE HYDROCHLORIDE
     Indication: DEPRESSION
     Dosage: UNK, DAILY
     Route: 048
     Dates: start: 2007
  6. COZAAR [Concomitant]
     Active Substance: LOSARTAN POTASSIUM
     Indication: PRODUCT USED FOR UNKNOWN INDICATION
     Dosage: UNK, DAILY
     Route: 048
     Dates: start: 1998
  7. BUPRENORPHINE [Suspect]
     Active Substance: BUPRENORPHINE
     Indication: NECK PAIN
     Dosage: 4 MG, DAILY
     Route: 048
     Dates: start: 2011, end: 20140330
  8. TETANUS ANTITOXIN                  /02139601/ [Concomitant]
     Indication: PROPHYLAXIS
     Dosage: UNKNOWN
     Route: 051
     Dates: start: 20140203, end: 20140203
  9. PLACEBO [Suspect]
     Active Substance: UNSPECIFIED INGREDIENT
     Indication: HYPERLIPIDAEMIA
     Dosage: UNKNOWN, EVERY TWO WEEKS
     Route: 058
     Dates: start: 20140108, end: 20140319
  10. FISH OIL [Concomitant]
     Active Substance: FISH OIL
     Indication: NUTRITIONAL SUPPLEMENTATION
     Dosage: UNK, DAILY
     Route: 048
     Dates: start: 2008

REACTIONS (2)
  - Drug dependence [Recovered/Resolved with Sequelae]
  - Intentional product misuse [Recovered/Resolved]

NARRATIVE: CASE EVENT DATE: 2011
